FAERS Safety Report 20351670 (Version 2)
Quarter: 2022Q4

REPORT INFORMATION
  Report Type: Spontaneous
  Country: CA (occurrence: CA)
  Receive Date: 20220119
  Receipt Date: 20221229
  Transmission Date: 20230112
  Serious: Yes (Hospitalization)
  Sender: FDA-Public Use
  Company Number: CA-TAKEDA-2022TUS003081

PATIENT
  Age: 58 Year
  Sex: Female
  Weight: 68 kg

DRUGS (2)
  1. BRIGATINIB [Suspect]
     Active Substance: BRIGATINIB
     Indication: Lung cancer metastatic
     Dosage: 120 MILLIGRAM, QD
     Route: 048
     Dates: start: 20210530, end: 20210907
  2. TAGRISSO [Suspect]
     Active Substance: OSIMERTINIB
     Indication: Lung cancer metastatic
     Dosage: 80 MILLIGRAM, QD
     Route: 048
     Dates: start: 20181113, end: 20210901

REACTIONS (2)
  - Pulmonary toxicity [Unknown]
  - Pneumonitis [Recovered/Resolved]
